FAERS Safety Report 7757076-3 (Version None)
Quarter: 2011Q3

REPORT INFORMATION
  Report Type: 
  Country: None (occurrence: None)
  Receive Date: 20110916
  Receipt Date: 20110909
  Transmission Date: 20111222
  Serious: Yes (Hospitalization, Other)
  Sender: FDA-Public Use
  Company Number: AU-ABBOTT-11P-008-0835994-00

PATIENT
  Sex: Male

DRUGS (1)
  1. HUMIRA [Suspect]
     Indication: ANKYLOSING SPONDYLITIS

REACTIONS (15)
  - FREQUENT BOWEL MOVEMENTS [None]
  - HAEMATOCHEZIA [None]
  - GASTRITIS [None]
  - MUCOUS STOOLS [None]
  - MALAISE [None]
  - ANAL STENOSIS [None]
  - ABDOMINAL PAIN LOWER [None]
  - HYPOPHAGIA [None]
  - DIARRHOEA [None]
  - IRON DEFICIENCY ANAEMIA [None]
  - POUCHITIS [None]
  - CAMPYLOBACTER INFECTION [None]
  - CROHN'S DISEASE [None]
  - INFLAMMATORY BOWEL DISEASE [None]
  - WEIGHT DECREASED [None]
